FAERS Safety Report 13285504 (Version 4)
Quarter: 2018Q2

REPORT INFORMATION
  Report Type: Spontaneous
  Country: US (occurrence: US)
  Receive Date: 20170301
  Receipt Date: 20180427
  Transmission Date: 20180711
  Serious: Yes (Hospitalization, Other)
  Sender: FDA-Public Use
  Company Number: US-VIFOR (INTERNATIONAL) INC.-VIT-2017-01819

PATIENT
  Age: 66 Year
  Sex: Female
  Weight: 52.5 kg

DRUGS (13)
  1. CARVEDILOL. [Concomitant]
     Active Substance: CARVEDILOL
  2. NORCO [Concomitant]
     Active Substance: ACETAMINOPHEN\HYDROCODONE BITARTRATE
     Indication: PAIN
     Dates: start: 201608
  3. KLONOPIN [Concomitant]
     Active Substance: CLONAZEPAM
  4. ACETYLSALICYLIC ACID [Concomitant]
     Active Substance: ASPIRIN
  5. VELTASSA [Suspect]
     Active Substance: PATIROMER
  6. PROMETHAZINE HYDROCHLORIDE. [Concomitant]
     Active Substance: PROMETHAZINE HYDROCHLORIDE
  7. GABAPENTIN. [Concomitant]
     Active Substance: GABAPENTIN
  8. ALLOPURINOL. [Concomitant]
     Active Substance: ALLOPURINOL
  9. RENVELA [Concomitant]
     Active Substance: SEVELAMER CARBONATE
  10. WARFARIN SODIUM. [Concomitant]
     Active Substance: WARFARIN SODIUM
  11. VELTASSA [Suspect]
     Active Substance: PATIROMER
     Indication: HYPERKALAEMIA
     Route: 048
     Dates: start: 20160310
  12. VELTASSA [Suspect]
     Active Substance: PATIROMER
     Dates: start: 20160819
  13. COUMADIN [Concomitant]
     Active Substance: WARFARIN SODIUM

REACTIONS (4)
  - Cerebrovascular accident [Unknown]
  - Leg amputation [Unknown]
  - Pain [Unknown]
  - Limb injury [Unknown]

NARRATIVE: CASE EVENT DATE: 2017
